FAERS Safety Report 22130006 (Version 4)
Quarter: 2023Q2

REPORT INFORMATION
  Report Type: Spontaneous
  Country: MX (occurrence: MX)
  Receive Date: 20230323
  Receipt Date: 20230502
  Transmission Date: 20230722
  Serious: Yes (Death, Hospitalization, Other)
  Sender: FDA-Public Use
  Company Number: MX-ASTELLAS-2023US009117

PATIENT
  Age: 57 Year
  Sex: Female

DRUGS (1)
  1. ISAVUCONAZOLE [Suspect]
     Active Substance: ISAVUCONAZOLE
     Indication: Aspergillus infection
     Dosage: UNK UNK, UNKNOWN FREQ.
     Route: 065

REACTIONS (5)
  - Leukaemia [Fatal]
  - Oncologic complication [Fatal]
  - Diabetes mellitus [Unknown]
  - Hypertension [Unknown]
  - Renal failure [Unknown]

NARRATIVE: CASE EVENT DATE: 20230309
